FAERS Safety Report 11626946 (Version 1)
Quarter: 2015Q4

REPORT INFORMATION
  Report Type: Spontaneous
  Country: FR (occurrence: FR)
  Receive Date: 20151013
  Receipt Date: 20151013
  Transmission Date: 20160304
  Serious: Yes (Other)
  Sender: FDA-Public Use
  Company Number: FR-TAKEDA-2015TUS013887

PATIENT
  Age: 62 Year
  Sex: Male

DRUGS (2)
  1. ADENURIC [Suspect]
     Active Substance: FEBUXOSTAT
     Indication: HYPERURICAEMIA
     Dosage: 120 MG, QD
     Route: 048
     Dates: start: 201507, end: 2015
  2. ADENURIC [Suspect]
     Active Substance: FEBUXOSTAT
     Dosage: 40 MG, QD
     Route: 048
     Dates: start: 201508

REACTIONS (5)
  - Rash [Not Recovered/Not Resolved]
  - Urticaria [Not Recovered/Not Resolved]
  - Off label use [Recovered/Resolved]
  - Pruritus [Not Recovered/Not Resolved]
  - Wrong technique in product usage process [Not Recovered/Not Resolved]

NARRATIVE: CASE EVENT DATE: 201507
